APPROVED DRUG PRODUCT: DIAZEPAM
Active Ingredient: DIAZEPAM
Strength: 10MG/2ML (5MG/ML)
Dosage Form/Route: INJECTABLE;INJECTION
Application: A070313 | Product #001 | TE Code: AP
Applicant: HIKMA PHARMACEUTICALS USA INC
Approved: Dec 16, 1985 | RLD: No | RS: No | Type: RX